FAERS Safety Report 6151899-2 (Version None)
Quarter: 2009Q2

REPORT INFORMATION
  Report Type: 
  Country: None (occurrence: None)
  Receive Date: 20090401
  Receipt Date: 20090320
  Transmission Date: 20091009
  Serious: Yes (Other)
  Sender: FDA-Public Use
  Company Number: THYM-1000966

PATIENT
  Sex: Male

DRUGS (3)
  1. THYMOGLOBULIN [Suspect]
     Indication: HEART TRANSPLANT
  2. THYMOGLOBULIN [Suspect]
  3. THYMOGLOBULIN [Suspect]

REACTIONS (2)
  - DRUG INEFFECTIVE [None]
  - HEART TRANSPLANT REJECTION [None]
